FAERS Safety Report 6178729-7 (Version None)
Quarter: 2009Q2

REPORT INFORMATION
  Report Type: 
  Country: None (occurrence: None)
  Receive Date: 20090504
  Receipt Date: 20081101
  Transmission Date: 20091009
  Serious: No
  Sender: FDA-Public Use
  Company Number: GB-ALEXION-A200800246

PATIENT

DRUGS (5)
  1. SOLIRIS [Suspect]
     Indication: PAROXYSMAL NOCTURNAL HAEMOGLOBINURIA
     Dosage: 600 MG, SINGLE
     Route: 042
     Dates: start: 20080725, end: 20080725
  2. OMEPRAZOLE [Concomitant]
     Dosage: 20 MG, UNK
     Route: 048
     Dates: start: 20080720
  3. FOLIC ACID [Concomitant]
     Indication: PAROXYSMAL NOCTURNAL HAEMOGLOBINURIA
     Dosage: 5 MG, UNK
     Route: 048
  4. ENOXAPARIN SODIUM [Concomitant]
     Indication: BUDD-CHIARI SYNDROME
     Route: 058
     Dates: start: 20080723
  5. SPIRONOLACTONE [Concomitant]
     Dosage: 50 MG, UNK
     Route: 048
     Dates: start: 20080728

REACTIONS (1)
  - PARAESTHESIA [None]
